FAERS Safety Report 9106145 (Version 2)
Quarter: 2013Q1

REPORT INFORMATION
  Report Type: Spontaneous
  Country: US (occurrence: US)
  Receive Date: 20130220
  Receipt Date: 20130321
  Transmission Date: 20140127
  Serious: Yes (Hospitalization)
  Sender: FDA-Public Use
  Company Number: US-US-EMD SERONO, INC.-7193324

PATIENT
  Sex: Male
  Weight: 108 kg

DRUGS (16)
  1. REBIF [Suspect]
     Indication: MULTIPLE SCLEROSIS
     Route: 058
     Dates: start: 2005, end: 2012
  2. REBIF [Suspect]
     Route: 058
     Dates: start: 2012
  3. LASIX [Concomitant]
     Indication: PRODUCT USED FOR UNKNOWN INDICATION
     Route: 048
  4. METHYLPREDNISOSLONE [Concomitant]
     Indication: PRODUCT USED FOR UNKNOWN INDICATION
  5. NUVIGIL [Concomitant]
     Indication: SOMNOLENCE
  6. BACLOFEN [Concomitant]
     Indication: MUSCLE SPASMS
     Route: 048
  7. FLUOXETINE [Concomitant]
     Indication: PARAESTHESIA
     Route: 048
  8. TRAMADOL ER [Concomitant]
     Indication: PAIN
  9. CLARITIN [Concomitant]
     Indication: HYPERSENSITIVITY
     Route: 048
  10. VITAMIN D AND CALCIUM [Concomitant]
     Indication: PRODUCT USED FOR UNKNOWN INDICATION
  11. ZINC [Concomitant]
     Indication: PRODUCT USED FOR UNKNOWN INDICATION
  12. OMEPRAZOLE [Concomitant]
     Indication: GASTROOESOPHAGEAL REFLUX DISEASE
  13. LISINOPRIL [Concomitant]
     Indication: PRODUCT USED FOR UNKNOWN INDICATION
     Route: 048
  14. OXYBUTYNIN ER [Concomitant]
     Indication: PRODUCT USED FOR UNKNOWN INDICATION
  15. TRAMADOL [Concomitant]
     Indication: PRODUCT USED FOR UNKNOWN INDICATION
     Route: 048
  16. AMPYRA [Concomitant]
     Indication: PRODUCT USED FOR UNKNOWN INDICATION
     Route: 048

REACTIONS (5)
  - Oedema peripheral [Recovered/Resolved]
  - Decubitus ulcer [Recovered/Resolved]
  - Urinary tract infection [Recovered/Resolved]
  - Clostridium difficile infection [Recovered/Resolved]
  - Herpes zoster [Recovered/Resolved]
